FAERS Safety Report 17465490 (Version 1)
Quarter: 2020Q1

REPORT INFORMATION
  Report Type: Spontaneous
  Country: CA (occurrence: CA)
  Receive Date: 20200226
  Receipt Date: 20200226
  Transmission Date: 20200409
  Serious: Yes (Hospitalization)
  Sender: FDA-Public Use
  Company Number: CA-SUN PHARMACEUTICAL INDUSTRIES LTD-2020R1-237721

PATIENT
  Age: 50 Year
  Sex: Female

DRUGS (1)
  1. NALTREXONE [Suspect]
     Active Substance: NALTREXONE
     Indication: PRODUCT USED FOR UNKNOWN INDICATION
     Dosage: UNK (50MG PILL)
     Route: 065

REACTIONS (3)
  - Delirium [Unknown]
  - Withdrawal syndrome [Unknown]
  - Diarrhoea [Unknown]
